FAERS Safety Report 12788316 (Version 1)
Quarter: 2016Q3

REPORT INFORMATION
  Report Type: Spontaneous
  Country: FI (occurrence: FI)
  Receive Date: 20160928
  Receipt Date: 20160928
  Transmission Date: 20161109
  Serious: Yes (Death, Other)
  Sender: FDA-Public Use
  Company Number: FI-AMGEN-FINSP2016129618

PATIENT
  Age: 81 Year
  Sex: Female

DRUGS (20)
  1. PIPERACILLIN/TAZOBACTAM HOSPIRA [Suspect]
     Active Substance: PIPERACILLIN SODIUM\TAZOBACTAM SODIUM
     Indication: PNEUMONIA
     Dosage: 12 G, QD
     Route: 042
     Dates: start: 20160614, end: 20160616
  2. MAREVAN [Concomitant]
     Active Substance: WARFARIN SODIUM
     Dosage: UNK
     Route: 048
     Dates: start: 2015
  3. OPAMOX [Concomitant]
     Dosage: 30 MG, QD
     Route: 048
  4. XALATAN [Concomitant]
     Active Substance: LATANOPROST
     Dosage: UNK UNK, QD
     Route: 047
  5. FURESIS SPECIAL [Concomitant]
     Dosage: UNK
     Route: 042
  6. TELMISARTAN. [Concomitant]
     Active Substance: TELMISARTAN
     Dosage: UNK
  7. KETIPINOR [Concomitant]
     Active Substance: QUETIAPINE FUMARATE
     Dosage: 50 MG, QD
     Route: 048
  8. CALCICHEW-D3 FORTE [Concomitant]
     Active Substance: CALCIUM\CHOLECALCIFEROL
     Dosage: UNK UNK, QD
     Route: 048
  9. MICARDIS [Concomitant]
     Active Substance: TELMISARTAN
     Dosage: 40 MG, QD
     Route: 048
  10. DONEPEZIL ACTAVIS [Concomitant]
     Active Substance: DONEPEZIL HYDROCHLORIDE
     Dosage: 5 MG, UNK
     Route: 048
  11. DIAPAM [Concomitant]
     Active Substance: DIAZEPAM
     Dosage: 20 MG, QD
     Route: 048
  12. FURESIS [Concomitant]
     Active Substance: FUROSEMIDE
     Dosage: 240 MG, UNK
     Route: 048
  13. KALEORID [Concomitant]
     Active Substance: POTASSIUM CHLORIDE
     Dosage: 3 G, QD
     Route: 048
  14. NORSPAN [Concomitant]
     Active Substance: BUPRENORPHINE
     Dosage: UNK
     Route: 062
  15. CITALOPRAM ORION [Concomitant]
     Active Substance: CITALOPRAM HYDROBROMIDE
     Dosage: 20 MG, QD
     Route: 048
  16. COSOPT [Concomitant]
     Active Substance: DORZOLAMIDE HYDROCHLORIDE\TIMOLOL MALEATE
     Dosage: UNK UNK, QD
     Route: 047
  17. KLEXANE [Concomitant]
     Active Substance: ENOXAPARIN
     Dosage: 120 MG, QD
  18. PROLIA [Suspect]
     Active Substance: DENOSUMAB
     Indication: OSTEOPOROSIS
     Dosage: 60 MG, UNK
     Route: 058
     Dates: start: 2015, end: 2016
  19. PRECOSA [Concomitant]
     Dosage: 1 G, QD
     Route: 048
  20. PANACOD [Concomitant]
     Active Substance: ACETAMINOPHEN\CODEINE PHOSPHATE
     Dosage: UNK
     Route: 048

REACTIONS (6)
  - Acute interstitial pneumonitis [Fatal]
  - Pulmonary fibrosis [Unknown]
  - Pulmonary embolism [Unknown]
  - Cardiac failure [Unknown]
  - Coronary artery disease [Unknown]
  - Cholestasis [Unknown]

NARRATIVE: CASE EVENT DATE: 20160607
